FAERS Safety Report 5231433-1 (Version None)
Quarter: 2007Q1

REPORT INFORMATION
  Report Type: 
  Country: None (occurrence: None)
  Receive Date: 20061201
  Receipt Date: 20060914
  Transmission Date: 20070707
  Serious: No
  Sender: FDA-Public Use
  Company Number: 2006PV021310

PATIENT
  Age: 49 Year
  Sex: Male

DRUGS (4)
  1. BYETTA [Suspect]
     Indication: DIABETES MELLITUS NON-INSULIN-DEPENDENT
     Dosage: SEE IMAGE
     Route: 058
     Dates: start: 20060701, end: 20060731
  2. BYETTA [Suspect]
     Indication: DIABETES MELLITUS NON-INSULIN-DEPENDENT
     Dosage: SEE IMAGE
     Route: 058
     Dates: start: 20060801
  3. GLIPIZIDE [Concomitant]
  4. METFORMIN HCL [Concomitant]

REACTIONS (5)
  - BACK PAIN [None]
  - BLOOD GLUCOSE INCREASED [None]
  - CONTUSION [None]
  - NECK PAIN [None]
  - STRESS [None]
